FAERS Safety Report 8896247 (Version 1)
Quarter: 2012Q4

REPORT INFORMATION
  Report Type: Spontaneous
  Country: US (occurrence: None)
  Receive Date: 20121106
  Receipt Date: 20121106
  Transmission Date: 20130627
  Serious: Yes (Life-Threatening, Hospitalization, Other)
  Sender: FDA-Public Use
  Company Number: None

PATIENT
  Age: 38 Year
  Sex: Female
  Weight: 56.7 kg

DRUGS (1)
  1. PAXIL [Suspect]
     Dosage: 1or 2 daily
     Dates: start: 19990401, end: 20121003

REACTIONS (9)
  - Anxiety [None]
  - Tremor [None]
  - Pain in extremity [None]
  - Erythema [None]
  - Skin exfoliation [None]
  - Migraine [None]
  - Suicidal ideation [None]
  - Paranoia [None]
  - Irritable bowel syndrome [None]
